FAERS Safety Report 8620879-7 (Version None)
Quarter: 2012Q3

REPORT INFORMATION
  Report Type: 
  Country: None (occurrence: None)
  Receive Date: 20120820
  Receipt Date: 20120820
  Transmission Date: 20120928
  Serious: Yes (Life-Threatening, Hospitalization, Congenital Anomaly)
  Sender: FDA-Public Use
  Company Number: None

PATIENT
  Age: 68 Year
  Sex: Male
  Weight: 80.2867 kg

DRUGS (2)
  1. SIMVASTATIN [Suspect]
     Indication: HYPERLIPIDAEMIA
     Dosage: DAILY PO
     Route: 048
  2. AZITHROMYCIN [Suspect]
     Indication: PNEUMONIA
     Dosage: 500MG X1D THEN 250MG/D FOR 5 D DAILY FOR 5 DAYS PO
     Route: 048
     Dates: start: 20120624, end: 20120628

REACTIONS (2)
  - BLOOD CREATINE PHOSPHOKINASE INCREASED [None]
  - MYALGIA [None]
